FAERS Safety Report 9401155 (Version 1)
Quarter: 2013Q3

REPORT INFORMATION
  Report Type: Spontaneous
  Country: IT (occurrence: IT)
  Receive Date: 20130715
  Receipt Date: 20130715
  Transmission Date: 20140515
  Serious: Yes (Hospitalization)
  Sender: FDA-Public Use
  Company Number: IT-TEVA-417177ISR

PATIENT
  Age: 78 Year
  Sex: Female

DRUGS (5)
  1. CARBOLITHIUM 300 MG [Suspect]
     Indication: BIPOLAR DISORDER
     Dosage: 300 MILLIGRAM DAILY;
     Route: 048
     Dates: start: 20080101, end: 20101202
  2. ZYLORIC 100 MG [Concomitant]
     Dosage: 100 MILLIGRAM DAILY;
  3. DEPONIT 10MG/24H [Concomitant]
     Dosage: 10 MILLIGRAM DAILY;
  4. SEROQUEL 50 MG [Concomitant]
     Dosage: 100 MILLIGRAM DAILY;
  5. FRAXIPARINA 2850 UI ANTIXA/0,3 ML [Concomitant]
     Dosage: .3 ML DAILY;

REACTIONS (6)
  - Antipsychotic drug level increased [Recovering/Resolving]
  - Hypernatraemia [Recovering/Resolving]
  - Hypercalcaemia [Recovering/Resolving]
  - Polyuria [Recovering/Resolving]
  - Polydipsia [Recovering/Resolving]
  - Dyskinesia [Recovering/Resolving]
